FAERS Safety Report 10903364 (Version 1)
Quarter: 2015Q1

REPORT INFORMATION
  Report Type: Spontaneous
  Country: US (occurrence: None)
  Receive Date: 20150304
  Receipt Date: 20150304
  Transmission Date: 20150721
  Serious: No
  Sender: FDA-Public Use
  Company Number: 15AE008

PATIENT
  Sex: Male

DRUGS (1)
  1. EQUALINE [Suspect]
     Active Substance: ALCOHOL\TRICLOSAN\ZINC GLUCONATE
     Indication: DIARRHOEA
     Route: 048
     Dates: start: 20150226

REACTIONS (2)
  - Vomiting [None]
  - No reaction on previous exposure to drug [None]

NARRATIVE: CASE EVENT DATE: 20150226
